FAERS Safety Report 24147152 (Version 2)
Quarter: 2024Q3

REPORT INFORMATION
  Report Type: Spontaneous
  Country: US (occurrence: US)
  Receive Date: 20240729
  Receipt Date: 20240812
  Transmission Date: 20241016
  Serious: Yes (Other)
  Sender: AMGEN
  Company Number: US-AMGEN-USASP2024145492

PATIENT
  Sex: Female

DRUGS (3)
  1. PROLIA [Suspect]
     Active Substance: DENOSUMAB
     Indication: Osteoporosis
     Dosage: 60 MILLIGRAM, Q6MO
     Route: 058
     Dates: start: 20221201
  2. VITAMIN D [Concomitant]
     Active Substance: VITAMIN D NOS
     Indication: Product used for unknown indication
     Dosage: BID (STRENGTH : 5000)
     Route: 065
  3. CALCIUM [Concomitant]
     Active Substance: CALCIUM
     Indication: Product used for unknown indication
     Dosage: UNK (STRENGTH 1200)
     Route: 065

REACTIONS (6)
  - Hip fracture [Unknown]
  - Device loosening [Unknown]
  - Cataract [Unknown]
  - Fall [Unknown]
  - Dental caries [Unknown]
  - Dry mouth [Unknown]

NARRATIVE: CASE EVENT DATE: 20230301
